FAERS Safety Report 7959841 (Version 2)
Quarter: 2012Q4

REPORT INFORMATION
  Report Type: 
  Country: CA (occurrence: CA)
  Receive Date: 20110525
  Receipt Date: 20120918
  Transmission Date: 20130627
  Serious: Yes (Death, Hospitalization, Other)
  Sender: FDA-Public Use
  Company Number: US-AMGEN-QUU378950

PATIENT
  Age: 60 Year
  Sex: Male

DRUGS (6)
  1. NEUPOGEN [Suspect]
     Indication: NEUTROPENIA
     Dosage: 480 mug, qd
     Route: 058
     Dates: start: 200612
  2. NEULASTA [Suspect]
     Indication: CHEMOTHERAPY
     Route: 058
  3. LOMOTIL [Concomitant]
  4. CRESTOR [Concomitant]
  5. LEUCOVORIN /00566701/ [Concomitant]
     Indication: COLON CANCER
     Dosage: 40 mg, UNK
     Dates: start: 20061215
  6. 5-FU /00098801/ [Concomitant]
     Indication: COLON CANCER
     Dosage: 675 mg, UNK
     Route: 040
     Dates: start: 20061215

REACTIONS (5)
  - Haemorrhage [Fatal]
  - Splenic rupture [Fatal]
  - Acute respiratory distress syndrome [Fatal]
  - Hepatic haemorrhage [Unknown]
  - White blood cell count increased [Unknown]
